FAERS Safety Report 17050880 (Version 2)
Quarter: 2019Q4

REPORT INFORMATION
  Report Type: Spontaneous
  Country: GB (occurrence: GB)
  Receive Date: 20191120
  Receipt Date: 20191212
  Transmission Date: 20200122
  Serious: Yes (Hospitalization, Other)
  Sender: FDA-Public Use
  Company Number: GB-ROCHE-2476474

PATIENT
  Age: 70 Year
  Sex: Female

DRUGS (2)
  1. GAZYVARO [Suspect]
     Active Substance: OBINUTUZUMAB
     Indication: CHRONIC LYMPHOCYTIC LEUKAEMIA
     Route: 042
  2. GAZYVARO [Suspect]
     Active Substance: OBINUTUZUMAB
     Route: 042

REACTIONS (3)
  - Vomiting [Unknown]
  - Lymphocytosis [Unknown]
  - Tumour lysis syndrome [Unknown]
